FAERS Safety Report 8887014 (Version 1)
Quarter: 2012Q4

REPORT INFORMATION
  Report Type: Report from Study
  Country: CA (occurrence: CA)
  Receive Date: 20121105
  Receipt Date: 20121105
  Transmission Date: 20130627
  Serious: Yes (Other)
  Sender: FDA-Public Use
  Company Number: CA-ROCHE-1145246

PATIENT
  Age: 48 None
  Sex: Female
  Weight: 53.57 kg

DRUGS (9)
  1. BEVACIZUMAB [Suspect]
     Indication: RADIATION NECROSIS
     Route: 042
     Dates: start: 20120529
  2. BEVACIZUMAB [Suspect]
     Indication: LUNG NEOPLASM MALIGNANT
     Route: 042
     Dates: start: 20120910
  3. DILANTIN [Concomitant]
  4. DEXAMETHASONE [Concomitant]
  5. PEMETREXED [Concomitant]
  6. DIPHENHYDRAMINE HCL [Concomitant]
     Indication: PREMEDICATION
     Dosage: once
     Route: 048
     Dates: start: 20120910, end: 20120910
  7. DIPHENHYDRAMINE HCL [Concomitant]
     Dosage: once
     Route: 048
     Dates: start: 20120924, end: 20120924
  8. METHYLPREDNISOLONE [Concomitant]
     Indication: PREMEDICATION
     Dosage: once
     Route: 042
     Dates: start: 20120910, end: 20120910
  9. METHYLPREDNISOLONE [Concomitant]
     Dosage: once
     Route: 042
     Dates: start: 20120924, end: 20120924

REACTIONS (6)
  - Aphonia [Not Recovered/Not Resolved]
  - Pharyngeal disorder [Not Recovered/Not Resolved]
  - Dizziness [Unknown]
  - Asthenia [Not Recovered/Not Resolved]
  - Asthenia [Not Recovered/Not Resolved]
  - Feeling abnormal [Recovering/Resolving]
